FAERS Safety Report 7799986-7 (Version None)
Quarter: 2011Q4

REPORT INFORMATION
  Report Type: 
  Country: None (occurrence: None)
  Receive Date: 20111006
  Receipt Date: 20110928
  Transmission Date: 20120403
  Serious: No
  Sender: FDA-Public Use
  Company Number: US-B.I. PHARMACEUTICALS,INC./RIDGEFIELD-2011-BP-23100BP

PATIENT
  Sex: Male

DRUGS (15)
  1. WELLBUTRIN [Concomitant]
     Indication: DEPRESSION
     Dosage: 450 MG
     Route: 048
  2. MOBIC [Concomitant]
     Indication: HYPERTENSION
     Dosage: 15 MG
     Route: 048
  3. OMEPRAZOLE [Concomitant]
     Indication: GASTROOESOPHAGEAL REFLUX DISEASE
     Dosage: 20 MG
     Route: 048
  4. AMBIEN [Concomitant]
     Indication: INSOMNIA
     Route: 048
  5. ZOCOR [Concomitant]
     Indication: BLOOD CHOLESTEROL INCREASED
     Dosage: 40 MG
     Route: 048
  6. MELOXICAM [Concomitant]
     Indication: PAIN
     Dosage: 15 MG
     Route: 048
  7. CARDURA [Concomitant]
     Indication: HYPERTENSION
     Dosage: 1 MG
     Route: 048
  8. PROMETHAZINE [Concomitant]
     Indication: NAUSEA
     Dosage: 25 MG
     Route: 048
  9. LIPITOR [Concomitant]
     Indication: BLOOD CHOLESTEROL INCREASED
     Dosage: 10 MG
     Route: 048
  10. POTASSIUM CHLORIDE [Concomitant]
     Indication: VITAMIN SUPPLEMENTATION
     Dosage: 10 MEQ
     Route: 048
  11. LASIX [Concomitant]
     Indication: CARDIAC FAILURE CONGESTIVE
     Dosage: 20 MG
     Route: 048
  12. LOTREL [Concomitant]
     Indication: HYPERTENSION
     Route: 048
  13. TRAMADOL HCL [Concomitant]
     Indication: PAIN
     Route: 048
  14. PRADAXA [Suspect]
     Indication: ATRIAL FIBRILLATION
     Dosage: 300 MG
     Route: 048
     Dates: start: 20110901, end: 20110901
  15. DIGOXIN [Concomitant]
     Indication: CARDIAC FAILURE CONGESTIVE
     Dosage: 0.25 MG
     Route: 048

REACTIONS (2)
  - RASH [None]
  - SECRETION DISCHARGE [None]
